FAERS Safety Report 17823299 (Version 2)
Quarter: 2020Q2

REPORT INFORMATION
  Report Type: Spontaneous
  Country: JP (occurrence: JP)
  Receive Date: 20200526
  Receipt Date: 20200528
  Transmission Date: 20200714
  Serious: Yes (Other)
  Sender: FDA-Public Use
  Company Number: JP-BAUSCH-BL-2020-013553

PATIENT
  Age: 78 Year
  Sex: Male

DRUGS (8)
  1. CISPLATIN. [Suspect]
     Active Substance: CISPLATIN
     Dosage: A BI-WEEKLY DCF THERAPY; ON DAY 1
     Route: 065
  2. CISPLATIN. [Suspect]
     Active Substance: CISPLATIN
     Indication: OESOPHAGEAL SQUAMOUS CELL CARCINOMA STAGE I
     Dosage: FP THERAPY; ON DAY 1
     Route: 065
  3. DOCETAXEL. [Suspect]
     Active Substance: DOCETAXEL
     Indication: OESOPHAGEAL SQUAMOUS CELL CARCINOMA STAGE I
     Dosage: DCF THERAPY; ON DAY 1
     Route: 065
  4. 5-FLUOROURACIL [Suspect]
     Active Substance: FLUOROURACIL
     Dosage: DCF THERAPY (DAY 1 TO 5)
     Route: 065
  5. 5-FLUOROURACIL [Suspect]
     Active Substance: FLUOROURACIL
     Dosage: BI-WEEKLY DCF THERAPY ON DAY 1-5
     Route: 065
  6. CISPLATIN. [Suspect]
     Active Substance: CISPLATIN
     Dosage: DCF THERAPY; ON DAY 1
     Route: 065
  7. 5-FLUOROURACIL [Suspect]
     Active Substance: FLUOROURACIL
     Indication: OESOPHAGEAL SQUAMOUS CELL CARCINOMA STAGE I
     Dosage: FP THERAPY (DAY 1 TO 4)
     Route: 065
  8. DOCETAXEL. [Suspect]
     Active Substance: DOCETAXEL
     Dosage: A BI-WEEKLY DCF THERAPY;ON DAY 1/15
     Route: 065

REACTIONS (5)
  - Neutropenia [Unknown]
  - Diarrhoea [Recovered/Resolved]
  - Drug ineffective [Unknown]
  - Pneumonia aspiration [Recovered/Resolved]
  - Febrile neutropenia [Recovered/Resolved]
